FAERS Safety Report 11832285 (Version 3)
Quarter: 2020Q3

REPORT INFORMATION
  Report Type: Report from Study
  Country: US (occurrence: US)
  Receive Date: 20151214
  Receipt Date: 20200701
  Transmission Date: 20201102
  Serious: Yes (Other)
  Sender: FDA-Public Use
  Company Number: US-ACTELION-A-NJ2015-126149

PATIENT
  Age: 67 Year
  Sex: Male

DRUGS (2)
  1. OPSUMIT [Suspect]
     Active Substance: MACITENTAN
     Indication: PULMONARY ARTERIAL HYPERTENSION
     Dosage: 10 MG, QD
     Route: 048
     Dates: start: 20150916, end: 20151021
  2. ADEMPAS [Concomitant]
     Active Substance: RIOCIGUAT
     Dosage: 0.5 UNK, TID

REACTIONS (16)
  - Photophobia [Unknown]
  - Dyspnoea exertional [Unknown]
  - Muscle spasms [Not Recovered/Not Resolved]
  - Oedema peripheral [Recovered/Resolved]
  - Condition aggravated [Recovered/Resolved]
  - Oxygen saturation decreased [Unknown]
  - Weight increased [Recovered/Resolved]
  - Blood pressure decreased [Recovered/Resolved]
  - Nasopharyngitis [Unknown]
  - Atrial fibrillation [Unknown]
  - Abdominal distension [Recovered/Resolved]
  - Dyspnoea [Unknown]
  - Rales [Recovered/Resolved]
  - Eye irritation [Unknown]
  - Cough [Unknown]
  - Hypotension [Unknown]

NARRATIVE: CASE EVENT DATE: 20150916
